FAERS Safety Report 15448821 (Version 3)
Quarter: 2018Q3

REPORT INFORMATION
  Report Type: Spontaneous
  Country: JP (occurrence: JP)
  Receive Date: 20180929
  Receipt Date: 20180929
  Transmission Date: 20181010
  Serious: Yes (Life-Threatening, Other)
  Sender: FDA-Public Use
  Company Number: PHHY2018JP108426

PATIENT
  Age: 12 Year
  Sex: Male

DRUGS (5)
  1. L?ASPARAGINASE [Suspect]
     Active Substance: ASPARAGINASE
     Indication: T-CELL TYPE ACUTE LEUKAEMIA
     Dosage: UNK
     Route: 039
  2. DAUNORUBICIN [Suspect]
     Active Substance: DAUNORUBICIN
     Indication: T-CELL TYPE ACUTE LEUKAEMIA
     Dosage: UNK
     Route: 039
  3. DEXAMETHASONE. [Suspect]
     Active Substance: DEXAMETHASONE
     Indication: T-CELL TYPE ACUTE LEUKAEMIA
     Dosage: UNK
     Route: 065
  4. VINCRISTINE [Suspect]
     Active Substance: VINCRISTINE
     Indication: T-CELL TYPE ACUTE LEUKAEMIA
     Dosage: UNK
     Route: 039
  5. PREDNISOLONE. [Suspect]
     Active Substance: PREDNISOLONE
     Indication: T-CELL TYPE ACUTE LEUKAEMIA
     Dosage: UNK
     Route: 065

REACTIONS (14)
  - Blood albumin decreased [Unknown]
  - Headache [Recovered/Resolved]
  - Nystagmus [Unknown]
  - IIIrd nerve disorder [Recovering/Resolving]
  - Malnutrition [Recovering/Resolving]
  - Blood bilirubin increased [Unknown]
  - Body mass index decreased [Unknown]
  - Hypophagia [Unknown]
  - Wernicke^s encephalopathy [Recovered/Resolved]
  - Nausea [Unknown]
  - Vitamin B1 decreased [Recovered/Resolved]
  - Dizziness [Unknown]
  - Nervous system disorder [Unknown]
  - Hypertransaminasaemia [Unknown]
